FAERS Safety Report 12635850 (Version 7)
Quarter: 2016Q4

REPORT INFORMATION
  Report Type: Spontaneous
  Country: US (occurrence: US)
  Receive Date: 20160809
  Receipt Date: 20161003
  Transmission Date: 20170207
  Serious: Yes (Hospitalization, Disabling)
  Sender: FDA-Public Use
  Company Number: US-ACTELION-A-US2016-135230

PATIENT
  Age: 72 Year
  Sex: Female

DRUGS (21)
  1. UPTRAVI [Suspect]
     Active Substance: SELEXIPAG
     Indication: PULMONARY ARTERIAL HYPERTENSION
     Dosage: 200 MCG, BID
     Route: 048
     Dates: start: 20160628
  2. UPTRAVI [Suspect]
     Active Substance: SELEXIPAG
     Dosage: 800 MCG, BID
     Route: 048
     Dates: start: 20160809, end: 20160811
  3. FUROSEMIDE. [Concomitant]
     Active Substance: FUROSEMIDE
  4. OMEPRAZOLE. [Concomitant]
     Active Substance: OMEPRAZOLE
  5. SPIRIVA [Concomitant]
     Active Substance: TIOTROPIUM BROMIDE MONOHYDRATE
  6. OPSUMIT [Concomitant]
     Active Substance: MACITENTAN
     Indication: PULMONARY ARTERIAL HYPERTENSION
     Route: 048
  7. FLOVENT [Concomitant]
     Active Substance: FLUTICASONE PROPIONATE
  8. TRACLEER [Suspect]
     Active Substance: BOSENTAN
     Indication: PULMONARY ARTERIAL HYPERTENSION
     Dosage: 125 MG, BID
     Route: 048
     Dates: start: 20130701, end: 201608
  9. PREDNISONE. [Concomitant]
     Active Substance: PREDNISONE
  10. PLAQUENIL [Concomitant]
     Active Substance: HYDROXYCHLOROQUINE SULFATE
  11. SYNTHROID [Concomitant]
     Active Substance: LEVOTHYROXINE SODIUM
  12. PAXIL [Concomitant]
     Active Substance: PAROXETINE HYDROCHLORIDE
  13. AMLODIPINE [Concomitant]
     Active Substance: AMLODIPINE BESYLATE
  14. LISINOPRIL. [Concomitant]
     Active Substance: LISINOPRIL
  15. REVATIO [Concomitant]
     Active Substance: SILDENAFIL CITRATE
  16. UPTRAVI [Suspect]
     Active Substance: SELEXIPAG
     Dosage: 800 MCG, BID
     Route: 048
     Dates: start: 201608
  17. PROVENTIL [Concomitant]
     Active Substance: ALBUTEROL
  18. ADVIL [Concomitant]
     Active Substance: IBUPROFEN
  19. ASPIRIN. [Concomitant]
     Active Substance: ASPIRIN
  20. LATANOPROST. [Concomitant]
     Active Substance: LATANOPROST
  21. ALPHAGAN P [Concomitant]
     Active Substance: BRIMONIDINE TARTRATE

REACTIONS (19)
  - Dyspnoea [Recovered/Resolved]
  - Abdominal pain upper [Recovered/Resolved]
  - Feeling abnormal [Unknown]
  - Peripheral swelling [Not Recovered/Not Resolved]
  - Hypopnoea [Not Recovered/Not Resolved]
  - Malaise [Unknown]
  - Dizziness [Recovered/Resolved]
  - Oedema [Not Recovered/Not Resolved]
  - Swelling [Not Recovered/Not Resolved]
  - Headache [Recovered/Resolved]
  - Generalised oedema [Recovered/Resolved]
  - Oxygen saturation decreased [Unknown]
  - Nausea [Unknown]
  - Activities of daily living impaired [Unknown]
  - Blood pressure fluctuation [Unknown]
  - Diarrhoea [Recovered/Resolved]
  - Vomiting [Unknown]
  - Drug intolerance [Unknown]
  - Fluid retention [Unknown]

NARRATIVE: CASE EVENT DATE: 20160420
